FAERS Safety Report 9402559 (Version 2)
Quarter: 2013Q3

REPORT INFORMATION
  Report Type: Report from Study
  Country: GB (occurrence: GB)
  Receive Date: 20130716
  Receipt Date: 20130828
  Transmission Date: 20140515
  Serious: Yes (Hospitalization)
  Sender: FDA-Public Use
  Company Number: GB-UCBSA-091268

PATIENT
  Age: 62 Year
  Sex: Female

DRUGS (5)
  1. CERTOLIZUMAB PEGOL [Suspect]
     Indication: RHEUMATOID ARTHRITIS
     Route: 058
     Dates: start: 20121111, end: 20130327
  2. AMLODIPINE [Concomitant]
     Indication: HYPERTENSION
     Route: 048
  3. SIMVASTATIN [Concomitant]
     Indication: BLOOD CHOLESTEROL INCREASED
     Dosage: 20 MG
  4. CYCLIZINE [Concomitant]
     Indication: DIZZINESS
     Route: 048
  5. PARACETAMOL [Concomitant]
     Indication: PAIN
     Route: 048

REACTIONS (1)
  - Urinary tract infection [Recovered/Resolved]
